FAERS Safety Report 7823990-3 (Version None)
Quarter: 2011Q4

REPORT INFORMATION
  Report Type: 
  Country: None (occurrence: None)
  Receive Date: 20111014
  Receipt Date: 20111003
  Transmission Date: 20120403
  Serious: Yes (Death, Congenital Anomaly)
  Sender: FDA-Public Use
  Company Number: 1000024563

PATIENT

DRUGS (6)
  1. MULTIVITAMIN(S) (VIGRAN) (VIGRAN) [Concomitant]
  2. PYRIDOXINE (PYRIDOXINE) (PYRIDOXINE) [Concomitant]
  3. DOXYLAMINE SUCCINATE )DOXYLAMINE SUCCINATE) (DOXYLAMINE SUCCINATE) [Concomitant]
  4. RANITIDINE [Concomitant]
  5. ALPRAZOLAM [Concomitant]
  6. ESCITALOPRAM [Suspect]
     Dosage: 20 MG (20 MG, 1 IN 1 D), TRANSPLACENTAL
     Route: 064

REACTIONS (8)
  - CONGENITAL ANOMALY [None]
  - CONGENITAL CYSTIC KIDNEY DISEASE [None]
  - SINGLE UMBILICAL ARTERY [None]
  - ABORTION INDUCED [None]
  - NEURAL TUBE DEFECT [None]
  - OLIGOHYDRAMNIOS [None]
  - MATERNAL DRUGS AFFECTING FOETUS [None]
  - RENAL DYSPLASIA [None]
